FAERS Safety Report 10230622 (Version 1)
Quarter: 2014Q2

REPORT INFORMATION
  Report Type: Spontaneous
  Country: US (occurrence: None)
  Receive Date: 20140610
  Receipt Date: 20140610
  Transmission Date: 20141212
  Serious: Yes (Other)
  Sender: FDA-Public Use
  Company Number: None

PATIENT
  Age: 53 Year
  Sex: Female
  Weight: 57.61 kg

DRUGS (1)
  1. FOSAMAX 70 MG ALENDRONATE [Suspect]
     Indication: OSTEOPOROSIS POSTMENOPAUSAL
     Dosage: 1 PILL ONCE WEEKLY TAKEN BY MOUTH?3 WKS ON , 3 WKS OFF, 3 WKS ON
     Route: 048

REACTIONS (4)
  - Headache [None]
  - Dysgeusia [None]
  - Nausea [None]
  - Hyperchlorhydria [None]
